FAERS Safety Report 17134236 (Version 1)
Quarter: 2019Q4

REPORT INFORMATION
  Report Type: Spontaneous
  Country: MA (occurrence: MA)
  Receive Date: 20191210
  Receipt Date: 20191210
  Transmission Date: 20200122
  Serious: Yes (Other)
  Sender: FDA-Public Use
  Company Number: MA-STRIDES ARCOLAB LIMITED-2019SP012476

PATIENT
  Age: 58 Year
  Sex: Female

DRUGS (1)
  1. AMLODIPINE [Suspect]
     Active Substance: AMLODIPINE BESYLATE
     Indication: HYPERTENSION
     Dosage: UNK
     Route: 065

REACTIONS (4)
  - Blister [Recovered/Resolved]
  - Pemphigus [Recovered/Resolved]
  - Nikolsky^s sign [Recovered/Resolved]
  - Pruritus [Recovered/Resolved]
